FAERS Safety Report 9676346 (Version 4)
Quarter: 2014Q3

REPORT INFORMATION
  Report Type: Spontaneous
  Country: US (occurrence: US)
  Receive Date: 20131107
  Receipt Date: 20140903
  Transmission Date: 20150326
  Serious: Yes (Hospitalization, Other)
  Sender: FDA-Public Use
  Company Number: US-009507513-2012SP011949

PATIENT
  Sex: Female

DRUGS (1)
  1. NUVARING [Suspect]
     Active Substance: ETHINYL ESTRADIOL\ETONOGESTREL
     Indication: CONTRACEPTION
     Dosage: UNK
     Route: 067
     Dates: start: 200909, end: 200911

REACTIONS (10)
  - Asthma [Unknown]
  - Pulmonary embolism [Recovered/Resolved]
  - Anxiety [Unknown]
  - Musculoskeletal chest pain [Unknown]
  - Bronchogenic cyst [Unknown]
  - Depressive symptom [Unknown]
  - Anaemia [Unknown]
  - Pulmonary embolism [Recovered/Resolved]
  - Musculoskeletal chest pain [Unknown]
  - Depression [Unknown]

NARRATIVE: CASE EVENT DATE: 20091114
